FAERS Safety Report 12638619 (Version 6)
Quarter: 2016Q4

REPORT INFORMATION
  Report Type: Spontaneous
  Country: US (occurrence: US)
  Receive Date: 20160809
  Receipt Date: 20161104
  Transmission Date: 20170207
  Serious: Yes (Hospitalization)
  Sender: FDA-Public Use
  Company Number: US-SA-2016SA144828

PATIENT
  Age: 68 Year
  Sex: Male
  Weight: 131.7 kg

DRUGS (14)
  1. TAXOTERE [Suspect]
     Active Substance: DOCETAXEL
     Indication: BLADDER CANCER
     Route: 042
     Dates: start: 20160923, end: 20160923
  2. COUMADIN [Concomitant]
     Active Substance: WARFARIN SODIUM
     Indication: TRANSIENT ISCHAEMIC ATTACK
     Route: 065
     Dates: start: 1998
  3. OMEPRAZOLE. [Concomitant]
     Active Substance: OMEPRAZOLE
     Indication: GASTROOESOPHAGEAL REFLUX DISEASE
     Route: 065
     Dates: start: 20140103
  4. ZOFRAN [Concomitant]
     Active Substance: ONDANSETRON HYDROCHLORIDE
     Route: 065
     Dates: start: 20160601
  5. NEUPOGEN [Concomitant]
     Active Substance: FILGRASTIM
     Route: 065
     Dates: start: 20160528, end: 20160601
  6. LOSARTAN. [Concomitant]
     Active Substance: LOSARTAN
     Indication: HYPERTENSION
     Route: 065
     Dates: start: 20160104
  7. SODIUM BICARBONATE. [Concomitant]
     Active Substance: SODIUM BICARBONATE
     Indication: RENAL FAILURE
     Route: 065
     Dates: start: 20150401
  8. TAXOTERE [Suspect]
     Active Substance: DOCETAXEL
     Indication: BLADDER CANCER
     Route: 042
     Dates: start: 20160714, end: 20160714
  9. BENADRYL [Concomitant]
     Active Substance: DIPHENHYDRAMINE HYDROCHLORIDE
     Route: 065
     Dates: start: 20160527
  10. TAXOTERE [Suspect]
     Active Substance: DOCETAXEL
     Indication: BLADDER CANCER
     Route: 042
     Dates: start: 20160527, end: 20160527
  11. NEUPOGEN [Concomitant]
     Active Substance: FILGRASTIM
     Route: 065
     Dates: start: 20160528, end: 20160601
  12. TAXOTERE [Suspect]
     Active Substance: DOCETAXEL
     Indication: BLADDER CANCER
     Route: 042
     Dates: start: 20160901, end: 20160901
  13. DEXAMETHASONE. [Concomitant]
     Active Substance: DEXAMETHASONE
     Route: 065
     Dates: start: 20160526
  14. FAMOTIDINE. [Concomitant]
     Active Substance: FAMOTIDINE
     Route: 065
     Dates: start: 20160527

REACTIONS (6)
  - Ureteric stenosis [Recovered/Resolved]
  - Constipation [Recovered/Resolved]
  - Hydronephrosis [Recovered/Resolved]
  - Pain [Recovered/Resolved]
  - Urosepsis [Recovered/Resolved]
  - Pyelonephritis [Recovered/Resolved]

NARRATIVE: CASE EVENT DATE: 20160601
